FAERS Safety Report 4516509-6 (Version None)
Quarter: 2004Q4

REPORT INFORMATION
  Report Type: 
  Country: None (occurrence: None)
  Receive Date: 20041027
  Receipt Date: 20040721
  Transmission Date: 20050328
  Serious: No
  Sender: FDA-Public Use
  Company Number: US084395

PATIENT
  Age: 81 Year
  Sex: Female

DRUGS (13)
  1. SENSIPAR [Suspect]
     Indication: HYPERPARATHYROIDISM SECONDARY
     Dosage: 30 MG, 1 IN 1 DAYS, PO
     Route: 048
     Dates: start: 20040621
  2. SEVELAMER HCL [Concomitant]
  3. EPOGEN [Concomitant]
  4. LISINOPRIL [Concomitant]
  5. PSYLLIUM HYDROPHILIC MUCILLOID [Concomitant]
  6. MIRALAX [Concomitant]
  7. ROSIGLITAZONE MALEATE [Concomitant]
  8. PANTOPRAZOLE SODIUM [Concomitant]
  9. ATORVASTATIN CALCIUM [Concomitant]
  10. EZETIMIBE [Concomitant]
  11. GLIPIZIDE [Concomitant]
  12. NEPHRO-VITE [Concomitant]
  13. ACETAMINOPHEN AND OXYCODONE HCL [Concomitant]

REACTIONS (2)
  - BLOOD CALCIUM DECREASED [None]
  - PAIN IN EXTREMITY [None]
